FAERS Safety Report 7802191-9 (Version None)
Quarter: 2011Q4

REPORT INFORMATION
  Report Type: 
  Country: None (occurrence: None)
  Receive Date: 20111007
  Receipt Date: 20110926
  Transmission Date: 20120403
  Serious: No
  Sender: FDA-Public Use
  Company Number: US-JNJFOC-20110910648

PATIENT

DRUGS (1)
  1. INVEGA SUSTENNA [Suspect]
     Indication: SCHIZOPHRENIA
     Dosage: INITIATION DOSE
     Route: 030
     Dates: start: 20110901

REACTIONS (2)
  - DEVICE LEAKAGE [None]
  - UNDERDOSE [None]
